FAERS Safety Report 20126624 (Version 1)
Quarter: 2021Q4

REPORT INFORMATION
  Report Type: Report from Study
  Country: SK (occurrence: SK)
  Receive Date: 20211129
  Receipt Date: 20211129
  Transmission Date: 20220303
  Serious: Yes (Death, Other)
  Sender: FDA-Public Use
  Company Number: SK-TAKEDA-2021TUS073791

PATIENT
  Age: 62 Year
  Sex: Female
  Weight: 51 kg

DRUGS (1)
  1. HUMAN IMMUNOGLOBULIN G [Suspect]
     Active Substance: HUMAN IMMUNOGLOBULIN G
     Indication: Product used for unknown indication
     Dosage: 4 GRAM, 1/WEEK
     Route: 065
     Dates: start: 20210618, end: 20211113

REACTIONS (1)
  - Hodgkin^s disease [Fatal]
